FAERS Safety Report 7251493-6 (Version None)
Quarter: 2011Q1

REPORT INFORMATION
  Report Type: 
  Country: None (occurrence: None)
  Receive Date: 20110128
  Receipt Date: 20110121
  Transmission Date: 20110831
  Serious: Yes (Hospitalization, Other)
  Sender: FDA-Public Use
  Company Number: PHHY2011US05423

PATIENT
  Age: 68 Year
  Sex: Male

DRUGS (15)
  1. LAMICTAL [Concomitant]
     Indication: BIPOLAR DISORDER
     Dosage: 300 MG, DAILY
     Route: 048
     Dates: start: 20030304
  2. DOXYCYCLINE [Concomitant]
     Dosage: 200 MG, DAILY
     Dates: start: 20100120
  3. CELEXA [Concomitant]
     Indication: DEPRESSION
     Dosage: 40 MG, DAILY
     Route: 048
     Dates: start: 20011215, end: 20110114
  4. TEMAZEPAM [Concomitant]
     Indication: INSOMNIA
     Dosage: 30 MG,
     Dates: start: 20030303
  5. ZOFRAN [Concomitant]
     Indication: VOMITING
     Dosage: 4 MG,
     Dates: start: 20101108
  6. SORIATANE [Concomitant]
     Indication: SKIN CANCER
     Dosage: 10 MG, DAILY
     Route: 048
     Dates: start: 20080626
  7. MYFORTIC [Suspect]
     Dosage: 750 MG, DAILY
     Route: 048
     Dates: start: 20100806
  8. PREDNISONE [Concomitant]
     Indication: PROPHYLAXIS AGAINST TRANSPLANT REJECTION
     Dosage: 6 MG, DAILY
     Dates: start: 19910517
  9. CLONAZEPAM [Concomitant]
     Indication: ANXIETY
     Dosage: 0.5 MG,
     Dates: start: 20080730
  10. DIOVAN [Concomitant]
     Indication: HYPERTENSION
     Dosage: 80 MG, DAILY
     Route: 048
     Dates: start: 20080817
  11. ABILIFY [Concomitant]
     Indication: DEPRESSION
     Dosage: 4 MG, DAILY
     Route: 048
     Dates: start: 20090605
  12. ADDERALL XR 10 [Concomitant]
     Indication: DISTURBANCE IN ATTENTION
     Dosage: 20 MG, DAILY
     Route: 048
  13. MYFORTIC [Suspect]
     Indication: PROPHYLAXIS AGAINST TRANSPLANT REJECTION
     Dosage: 250 MG, DAILY
     Route: 048
     Dates: start: 20080712
  14. PROTONIX [Concomitant]
     Dosage: 80 MG, DAILY
     Route: 048
     Dates: start: 20101108
  15. ATENOLOL [Concomitant]
     Indication: HYPERTENSION
     Dosage: 25 MG, DAILY
     Route: 048
     Dates: start: 19901130

REACTIONS (8)
  - DISTURBANCE IN ATTENTION [None]
  - DEPRESSION [None]
  - ULCER [None]
  - HYPERTENSION [None]
  - NAUSEA [None]
  - VOMITING [None]
  - ANXIETY [None]
  - ACNE [None]
